FAERS Safety Report 5040575-5 (Version None)
Quarter: 2006Q2

REPORT INFORMATION
  Report Type: 
  Country: None (occurrence: None)
  Receive Date: 20060630
  Receipt Date: 20060621
  Transmission Date: 20061013
  Serious: Yes (Hospitalization)
  Sender: FDA-Public Use
  Company Number: US-ROCHE-452845

PATIENT
  Age: 53 Year
  Sex: Female

DRUGS (6)
  1. PEGASYS [Suspect]
     Dosage: STRENGTH REPORTED AS 180 MCG/0.5ML.
     Route: 058
     Dates: start: 20060206
  2. RIBAVIRIN [Suspect]
     Route: 048
     Dates: start: 20060206, end: 20060525
  3. RIBAVIRIN [Suspect]
     Route: 048
     Dates: end: 20060605
  4. IBUPROFEN [Concomitant]
     Indication: RHEUMATOID ARTHRITIS
     Route: 048
  5. ZOLOFT [Concomitant]
     Indication: DEPRESSION
     Route: 048
  6. HYDROCHLOROTHIAZIDE [Concomitant]
     Indication: HYPERTENSION
     Route: 048

REACTIONS (3)
  - ANAEMIA [None]
  - HYPOTENSION [None]
  - VISION BLURRED [None]
